FAERS Safety Report 7773654-X (Version None)
Quarter: 2011Q3

REPORT INFORMATION
  Report Type: 
  Country: None (occurrence: None)
  Receive Date: 20110923
  Receipt Date: 20110915
  Transmission Date: 20111222
  Serious: Yes (Hospitalization)
  Sender: FDA-Public Use
  Company Number: DE-BRISTOL-MYERS SQUIBB COMPANY-15405434

PATIENT
  Age: 60 Year
  Sex: Male
  Weight: 63 kg

DRUGS (3)
  1. CISPLATIN [Suspect]
     Indication: HEAD AND NECK CANCER
     Dosage: RECENT INF ON 11NOV10 NO OF INF:4
     Route: 042
     Dates: start: 20100908, end: 20101111
  2. FLUOROURACIL [Suspect]
     Indication: HEAD AND NECK CANCER
     Dosage: CONTINOUS INF FROM DAY 1 TO DAY 4 OF CYCLE RECNT INF ON 11NOV2010 NO OF INF:4
     Route: 042
     Dates: start: 20100908, end: 20101111
  3. CETUXIMAB [Suspect]
     Indication: HEAD AND NECK CANCER
     Dosage: STRENGTH:5MG/ML RECENT INF ON 11NOV10 NO OF INF:9 DRUG INTERRUPTED: 17NOV10,01DEC10,14DEC10-ONG
     Route: 042
     Dates: start: 20100908

REACTIONS (5)
  - DIARRHOEA [None]
  - NAUSEA [None]
  - DISCOMFORT [None]
  - PERFORMANCE STATUS DECREASED [None]
  - VOMITING [None]
